FAERS Safety Report 16224405 (Version 1)
Quarter: 2019Q2

REPORT INFORMATION
  Report Type: Spontaneous
  Country: PL (occurrence: PL)
  Receive Date: 20190422
  Receipt Date: 20190422
  Transmission Date: 20190711
  Serious: Yes (Hospitalization)
  Sender: FDA-Public Use
  Company Number: PL-PFIZER INC-2019165650

PATIENT
  Age: 46 Year
  Sex: Female
  Weight: 60 kg

DRUGS (2)
  1. DALACIN C [Suspect]
     Active Substance: CLINDAMYCIN PHOSPHATE
     Indication: PURULENT DISCHARGE
     Dosage: 300 MG, 3X/DAY(EVERY 8 HOURS)
     Route: 048
     Dates: start: 20160905, end: 20160910
  2. TINCTURE IODINE [ALCOHOL\IODINE\SODIUM IODIDE] [Suspect]
     Active Substance: ALCOHOL\IODINE\SODIUM IODIDE
     Indication: PURULENT DISCHARGE
     Dosage: UNK
     Route: 003
     Dates: start: 20160905

REACTIONS (5)
  - Drug eruption [Recovered/Resolved]
  - Pruritus [Recovered/Resolved]
  - Skin oedema [Recovered/Resolved]
  - Skin lesion [Recovered/Resolved]
  - Rash erythematous [Recovered/Resolved]

NARRATIVE: CASE EVENT DATE: 20160916
